FAERS Safety Report 15110147 (Version 3)
Quarter: 2018Q3

REPORT INFORMATION
  Report Type: Spontaneous
  Country: US (occurrence: US)
  Receive Date: 20180705
  Receipt Date: 20180822
  Transmission Date: 20181010
  Serious: Yes (Other)
  Sender: FDA-Public Use
  Company Number: US-PFIZER INC-2018265698

PATIENT
  Age: 42 Year
  Sex: Female
  Weight: 143 kg

DRUGS (3)
  1. VITAMIN D [Concomitant]
     Active Substance: CHOLECALCIFEROL
     Indication: SUPPLEMENTATION THERAPY
     Dosage: 1000 IU, DAILY
  2. MEDROXYPROGESTERONE ACETATE. [Suspect]
     Active Substance: MEDROXYPROGESTERONE ACETATE
     Indication: CONTRACEPTION
     Dosage: 150 MG, EVERY 3 MONTHS
     Route: 030
     Dates: start: 20180404
  3. LABETALOL [Concomitant]
     Active Substance: LABETALOL\LABETALOL HYDROCHLORIDE
     Indication: BLOOD PRESSURE ABNORMAL
     Dosage: 200 MG, UNK

REACTIONS (6)
  - Menstruation irregular [Unknown]
  - Drug ineffective [Unknown]
  - Anaemia [Unknown]
  - Unwanted pregnancy [Unknown]
  - Menorrhagia [Unknown]
  - Menstrual disorder [Unknown]

NARRATIVE: CASE EVENT DATE: 201806
